FAERS Safety Report 5150090-6 (Version None)
Quarter: 2006Q4

REPORT INFORMATION
  Report Type: 
  Country: None (occurrence: None)
  Receive Date: 20061113
  Receipt Date: 20060501
  Transmission Date: 20070319
  Serious: Yes (Life-Threatening, Hospitalization)
  Sender: FDA-Public Use
  Company Number: US-ABBOTT-06P-163-0332194-00

PATIENT
  Sex: Female
  Weight: 89.438 kg

DRUGS (22)
  1. RYTHMOL [Suspect]
     Indication: ATRIAL FIBRILLATION
     Route: 048
     Dates: start: 20060404, end: 20060418
  2. RYTHMOL [Suspect]
     Route: 048
     Dates: start: 20060419, end: 20060501
  3. RYTHMOL [Suspect]
     Route: 048
     Dates: start: 20060502
  4. SPIRONOLACTONE [Suspect]
     Indication: HYPERTENSION
     Route: 048
     Dates: start: 19660103
  5. SPIRONOLACTONE [Suspect]
     Indication: CARDIAC FAILURE CONGESTIVE
     Route: 048
     Dates: start: 20060103
  6. SPIRONOLACTONE [Suspect]
     Indication: HYPOKALAEMIA
     Route: 048
     Dates: start: 19660301
  7. QUININE SULFATE [Concomitant]
     Indication: MUSCLE SPASMS
     Dates: start: 19760102
  8. THYROID TAB [Concomitant]
     Indication: HYPOTHYROIDISM
     Dates: start: 19660103
  9. ACETYLSALICYLIC ACID SRT [Concomitant]
     Indication: CEREBROVASCULAR ACCIDENT
     Dates: start: 20051009
  10. ESTROGENS CONJUGATED [Concomitant]
     Indication: HORMONE REPLACEMENT THERAPY
     Dates: start: 19760102
  11. FUROSEMIDE [Concomitant]
     Indication: HYPERTENSION
     Dates: start: 19660103
  12. FUROSEMIDE [Concomitant]
     Indication: DRUG USE FOR UNKNOWN INDICATION
  13. PREDNISONE TAB [Concomitant]
     Indication: FIBROMYALGIA
     Dates: start: 19910301
  14. PREDNISONE TAB [Concomitant]
     Indication: DRUG USE FOR UNKNOWN INDICATION
  15. GLIPIZIDE [Concomitant]
     Indication: DIABETES MELLITUS
     Dates: start: 19960301
  16. GLIPIZIDE [Concomitant]
  17. CEFAZOLIN SODIUM [Concomitant]
     Indication: DRUG USE FOR UNKNOWN INDICATION
  18. CLINDAMYCIN [Concomitant]
     Indication: DRUG USE FOR UNKNOWN INDICATION
  19. LEVOTHYROXINE SODIUM [Concomitant]
     Indication: DRUG USE FOR UNKNOWN INDICATION
  20. SULFADIAZINE SILVER [Concomitant]
     Indication: DRUG USE FOR UNKNOWN INDICATION
  21. ATENOLOL [Concomitant]
     Indication: DRUG USE FOR UNKNOWN INDICATION
     Dates: start: 20060515
  22. AMIODARONE HCL [Concomitant]
     Indication: DRUG USE FOR UNKNOWN INDICATION
     Dates: start: 20060627

REACTIONS (20)
  - AORTIC CALCIFICATION [None]
  - AORTIC DISORDER [None]
  - ATRIAL FIBRILLATION [None]
  - BLOOD CREATININE INCREASED [None]
  - BLOOD ELECTROLYTES ABNORMAL [None]
  - BLOOD GLUCOSE DECREASED [None]
  - BLOOD POTASSIUM INCREASED [None]
  - BLOOD SODIUM DECREASED [None]
  - BLOOD UREA INCREASED [None]
  - CARDIAC FAILURE CONGESTIVE [None]
  - CARDIOMEGALY [None]
  - CELLULITIS [None]
  - CULTURE WOUND POSITIVE [None]
  - ECCHYMOSIS [None]
  - ESCHERICHIA INFECTION [None]
  - HYPERKALAEMIA [None]
  - IMPAIRED HEALING [None]
  - INTERNATIONAL NORMALISED RATIO INCREASED [None]
  - PROTHROMBIN TIME PROLONGED [None]
  - SKIN ULCER [None]
